FAERS Safety Report 19468348 (Version 2)
Quarter: 2022Q2

REPORT INFORMATION
  Report Type: Spontaneous
  Country: US (occurrence: US)
  Receive Date: 20210628
  Receipt Date: 20220429
  Transmission Date: 20220721
  Serious: No
  Sender: FDA-Public Use
  Company Number: US-PFIZER INC-2020066746

PATIENT
  Age: 80 Year
  Sex: Female

DRUGS (1)
  1. LYRICA [Suspect]
     Active Substance: PREGABALIN
     Indication: Pain
     Dosage: 100 MG, 3X/DAY, [SIG: TAKE 1 CAPSULE BY MOUTH 3 TIMES A DAY FOR CHRONIC PAIN]
     Route: 048

REACTIONS (1)
  - Gait disturbance [Unknown]
